FAERS Safety Report 18945721 (Version 5)
Quarter: 2021Q2

REPORT INFORMATION
  Report Type: Report from Study
  Country: US (occurrence: US)
  Receive Date: 20210226
  Receipt Date: 20210601
  Transmission Date: 20210717
  Serious: Yes (Other)
  Sender: FDA-Public Use
  Company Number: NVSC2021US039805

PATIENT
  Sex: Male

DRUGS (1)
  1. TABRECTA [Suspect]
     Active Substance: CAPMATINIB
     Indication: NON-SMALL CELL LUNG CANCER
     Dosage: UNK
     Route: 065

REACTIONS (7)
  - Fatigue [Unknown]
  - Pyrexia [Unknown]
  - Asthenia [Unknown]
  - Respiratory disorder [Unknown]
  - Red blood cell count decreased [Unknown]
  - Peripheral swelling [Unknown]
  - Metastases to central nervous system [Unknown]
